FAERS Safety Report 25539807 (Version 1)
Quarter: 2025Q3

REPORT INFORMATION
  Report Type: Spontaneous
  Country: US (occurrence: US)
  Receive Date: 20250710
  Receipt Date: 20250710
  Transmission Date: 20251020
  Serious: No
  Sender: BAYER HEALTHCARE PHARMACEUTICALS INC.
  Company Number: US-BAYER-2025A090378

PATIENT
  Age: 50 Year
  Sex: Female

DRUGS (2)
  1. MIRENA [Suspect]
     Active Substance: LEVONORGESTREL
     Indication: Genital haemorrhage
     Dosage: 20?G/DAY
     Route: 015
     Dates: start: 201801, end: 202210
  2. MIRENA [Suspect]
     Active Substance: LEVONORGESTREL
     Indication: Contraception

REACTIONS (1)
  - Hypomenorrhoea [None]

NARRATIVE: CASE EVENT DATE: 20180101
